FAERS Safety Report 8576868 (Version 9)
Quarter: 2014Q1

REPORT INFORMATION
  Report Type: Report from Study
  Country: DE (occurrence: DE)
  Receive Date: 20120524
  Receipt Date: 20140107
  Transmission Date: 20141002
  Serious: Yes (Hospitalization)
  Sender: FDA-Public Use
  Company Number: DE-BIOGENIDEC-2012BI017049

PATIENT
  Age: 56 Year
  Sex: Female
  Weight: 70 kg

DRUGS (12)
  1. TYSABRI [Suspect]
     Indication: RELAPSING-REMITTING MULTIPLE SCLEROSIS
     Route: 042
     Dates: start: 20090805
  2. METHIZOL 5 [Concomitant]
     Indication: HYPOTHYROIDISM
     Dates: start: 20090201
  3. SULPIRID [Concomitant]
     Dates: start: 20110808
  4. KEPPRA [Concomitant]
     Indication: EPILEPSY
     Dates: start: 20110912
  5. LEVODOPA [Concomitant]
     Dates: start: 20110701
  6. ASS 100 [Concomitant]
     Indication: ISCHAEMIA
     Dates: start: 20111130
  7. MADOPAR [Concomitant]
     Indication: TREMOR
     Dates: start: 20110701, end: 20111130
  8. MADOPAR [Concomitant]
     Indication: TREMOR
     Dates: start: 20111130
  9. VALDOXAN [Concomitant]
     Indication: DEPRESSION
     Dates: start: 20110808
  10. STILNOX [Concomitant]
     Indication: INSOMNIA
     Dates: start: 20110808
  11. ZYLORIC [Concomitant]
  12. REMERGIL [Concomitant]
     Dates: start: 20120501

REACTIONS (3)
  - Normochromic normocytic anaemia [Recovered/Resolved]
  - Gastrointestinal angiodysplasia [Recovered/Resolved]
  - Anaemia macrocytic [Not Recovered/Not Resolved]
